FAERS Safety Report 9786274 (Version 1)
Quarter: 2013Q4

REPORT INFORMATION
  Report Type: Spontaneous
  Country: BR (occurrence: None)
  Receive Date: 20131224
  Receipt Date: 20131224
  Transmission Date: 20140711
  Serious: Yes (Hospitalization)
  Sender: FDA-Public Use
  Company Number: DSJ-2013-27931

PATIENT
  Sex: Male
  Weight: 74 kg

DRUGS (2)
  1. BENICAR [Suspect]
     Indication: HYPERTENSION
     Route: 048
  2. MEDICINE [Suspect]
     Indication: FEELING HOT
     Dates: start: 2012

REACTIONS (8)
  - Pruritus [None]
  - Angioedema [None]
  - Glucose tolerance impaired [None]
  - Peripheral vascular disorder [None]
  - Nervous system disorder [None]
  - Oedema peripheral [None]
  - Diverticulitis [None]
  - Hyperglycaemia [None]
